FAERS Safety Report 9520662 (Version 1)
Quarter: 2013Q3

REPORT INFORMATION
  Report Type: Spontaneous
  Country: US (occurrence: US)
  Receive Date: 20130913
  Receipt Date: 20130913
  Transmission Date: 20140515
  Serious: No
  Sender: FDA-Public Use
  Company Number: US-009507513-1309USA000300

PATIENT
  Age: 42 Year
  Sex: Female
  Weight: 77.98 kg

DRUGS (2)
  1. NUVARING [Suspect]
     Indication: CONTRACEPTION
     Dosage: 3 WEEKS IN, 1 WEEK OUT, 1 RING
     Route: 067
     Dates: start: 2005
  2. NAPROXEN [Concomitant]

REACTIONS (2)
  - Metrorrhagia [Unknown]
  - Muscle spasms [Unknown]
